FAERS Safety Report 8108133-3 (Version None)
Quarter: 2012Q1

REPORT INFORMATION
  Report Type: 
  Country: None (occurrence: None)
  Receive Date: 20120202
  Receipt Date: 20120125
  Transmission Date: 20120608
  Serious: Yes (Hospitalization)
  Sender: FDA-Public Use
  Company Number: FR-PFIZER INC-2010119510

PATIENT
  Age: 53 Year
  Sex: Female

DRUGS (4)
  1. LEVONORGESTREL AND ETHINYL ESTRADIOL [Suspect]
     Route: 065
  2. NOZINAN [Suspect]
     Dosage: UNK
     Route: 065
  3. DILTIAZEM HCL [Suspect]
     Dosage: UNK
     Route: 065
  4. ARTANE [Suspect]
     Dosage: UNK
     Route: 048

REACTIONS (1)
  - INTRACRANIAL VENOUS SINUS THROMBOSIS [None]
